FAERS Safety Report 8584079-1 (Version None)
Quarter: 2012Q3

REPORT INFORMATION
  Report Type: 
  Country: None (occurrence: None)
  Receive Date: 20120810
  Receipt Date: 20120726
  Transmission Date: 20120928
  Serious: Yes (Hospitalization)
  Sender: FDA-Public Use
  Company Number: US-MERCK-1207USA012040

PATIENT

DRUGS (3)
  1. PEGASYS [Suspect]
     Route: 058
  2. REBETOL [Suspect]
     Route: 048
  3. VICTRELIS [Suspect]
     Route: 048

REACTIONS (4)
  - RED BLOOD CELL COUNT DECREASED [None]
  - PLATELET COUNT DECREASED [None]
  - WHITE BLOOD CELL COUNT DECREASED [None]
  - MENORRHAGIA [None]
